FAERS Safety Report 8298846 (Version 2)
Quarter: 2012Q4

REPORT INFORMATION
  Report Type: 
  Country: US (occurrence: US)
  Receive Date: 20111219
  Receipt Date: 20121026
  Transmission Date: 20130627
  Serious: No
  Sender: FDA-Public Use
  Company Number: US-ASTRAZENECA-2011SE29731

PATIENT
  Age: 67 Year
  Sex: Female

DRUGS (2)
  1. CRESTOR [Suspect]
     Route: 048
  2. SEROQUEL [Concomitant]
     Route: 048

REACTIONS (4)
  - Adverse event [Unknown]
  - Abdominal distension [Unknown]
  - Fluid retention [Unknown]
  - Depression [Unknown]
